FAERS Safety Report 9759705 (Version 1)
Quarter: 2013Q4

REPORT INFORMATION
  Report Type: Spontaneous
  Country: US (occurrence: US)
  Receive Date: 20131216
  Receipt Date: 20131216
  Transmission Date: 20140711
  Serious: No
  Sender: FDA-Public Use
  Company Number: US-GILEAD-2010-0029030

PATIENT
  Age: 80 Year
  Sex: Female
  Weight: 41.73 kg

DRUGS (14)
  1. LETAIRIS [Suspect]
     Indication: PULMONARY ARTERIAL HYPERTENSION
     Route: 048
     Dates: start: 20080124
  2. DAILY MULTIVITAMIN [Concomitant]
  3. CELLCEPT [Concomitant]
  4. ZITHROMAX [Concomitant]
  5. ATROVENT [Concomitant]
  6. VERAMYST [Concomitant]
  7. PLAQUENIL [Concomitant]
  8. ISOSORBIDE DN [Concomitant]
  9. NIFEDIPINE ER [Concomitant]
  10. NEXIUM [Concomitant]
  11. METOPROLOL [Concomitant]
  12. VITAMIN D [Concomitant]
  13. BL CALCIUM [Concomitant]
  14. ASPIRIN [Concomitant]

REACTIONS (2)
  - Night sweats [Unknown]
  - Hot flush [Unknown]
